FAERS Safety Report 4745482-0 (Version None)
Quarter: 2005Q3

REPORT INFORMATION
  Report Type: 
  Country: None (occurrence: None)
  Receive Date: 20050811
  Receipt Date: 20050128
  Transmission Date: 20060218
  Serious: Yes (Hospitalization)
  Sender: FDA-Public Use
  Company Number: USA020414570

PATIENT
  Sex: Female

DRUGS (2)
  1. HUMULIN L [Suspect]
  2. INSULIN [Suspect]

REACTIONS (10)
  - ASTHENIA [None]
  - BLOOD GLUCOSE INCREASED [None]
  - DECREASED APPETITE [None]
  - DIFFICULTY IN WALKING [None]
  - DIZZINESS [None]
  - DRUG INEFFECTIVE [None]
  - FEELING ABNORMAL [None]
  - HOT FLUSH [None]
  - MENOPAUSAL SYMPTOMS [None]
  - VOMITING [None]
